FAERS Safety Report 7293738-2 (Version None)
Quarter: 2011Q1

REPORT INFORMATION
  Report Type: 
  Country: None (occurrence: None)
  Receive Date: 20110215
  Receipt Date: 20110209
  Transmission Date: 20110831
  Serious: No
  Sender: FDA-Public Use
  Company Number: JP-ELI_LILLY_AND_COMPANY-JP201010004746

PATIENT
  Age: 16 Year
  Sex: Male

DRUGS (5)
  1. MERCAZOLE [Concomitant]
     Indication: THYROID DISORDER
     Route: 048
     Dates: start: 20100112, end: 20100907
  2. CYMBALTA [Suspect]
     Dosage: 60 MG, DAILY (1/D)
     Route: 048
     Dates: start: 20100825, end: 20100914
  3. CYMBALTA [Suspect]
     Dosage: 40 MG, DAILY (1/D)
     Route: 048
     Dates: start: 20100721, end: 20100824
  4. CYMBALTA [Suspect]
     Indication: ABULIA
     Dosage: 20 MG, DAILY (1/D)
     Route: 048
     Dates: start: 20100714, end: 20100720
  5. BENZALIN [Concomitant]
     Route: 048

REACTIONS (1)
  - BLOOD BILIRUBIN INCREASED [None]
